FAERS Safety Report 7350333-4 (Version None)
Quarter: 2011Q1

REPORT INFORMATION
  Report Type: 
  Country: None (occurrence: None)
  Receive Date: 20110314
  Receipt Date: 20110303
  Transmission Date: 20110831
  Serious: Yes (Hospitalization)
  Sender: FDA-Public Use
  Company Number: CA-ASTRAZENECA-2011SE08286

PATIENT
  Sex: Male

DRUGS (2)
  1. SYNTHROID [Concomitant]
     Indication: HYPOTHYROIDISM
     Dosage: DAILY
     Route: 048
  2. NEXIUM [Suspect]
     Route: 048

REACTIONS (3)
  - COW'S MILK INTOLERANCE [None]
  - RASH [None]
  - COLECTOMY [None]
